FAERS Safety Report 6511819-5 (Version None)
Quarter: 2009Q4

REPORT INFORMATION
  Report Type: 
  Country: None (occurrence: None)
  Receive Date: 20091222
  Receipt Date: 20091214
  Transmission Date: 20100525
  Serious: Yes (Hospitalization)
  Sender: FDA-Public Use
  Company Number: PHEH2009US16440

PATIENT
  Sex: Female

DRUGS (1)
  1. EXJADE [Suspect]
     Indication: CHRONIC MYELOID LEUKAEMIA
     Dosage: 1750 MG, DAILY
     Route: 048
     Dates: start: 20091112, end: 20091119

REACTIONS (4)
  - ABDOMINAL DISTENSION [None]
  - DYSPNOEA [None]
  - FLATULENCE [None]
  - REACTION TO DRUG EXCIPIENTS [None]
